FAERS Safety Report 4331429-8 (Version None)
Quarter: 2004Q2

REPORT INFORMATION
  Report Type: 
  Country: None (occurrence: None)
  Receive Date: 20040401
  Receipt Date: 20040401
  Transmission Date: 20050107
  Serious: Yes (Other)
  Sender: FDA-Public Use
  Company Number: None

PATIENT
  Sex: Female

DRUGS (1)
  1. AMOXICILLIN [Suspect]
     Dosage: 250MG TID OTHER
     Route: 050
     Dates: start: 20040311, end: 20040320

REACTIONS (1)
  - TOOTH DISCOLOURATION [None]
